FAERS Safety Report 7997714-3 (Version None)
Quarter: 2011Q4

REPORT INFORMATION
  Report Type: 
  Country: None (occurrence: None)
  Receive Date: 20111221
  Receipt Date: 20111207
  Transmission Date: 20120403
  Serious: Yes (Death, Other)
  Sender: FDA-Public Use
  Company Number: FR-ROCHE-1020821

PATIENT

DRUGS (7)
  1. MABTHERA [Suspect]
     Indication: B-CELL LYMPHOMA
  2. FLUDARABINE PHOSPHATE [Suspect]
     Indication: B-CELL LYMPHOMA
  3. OXALIPLATIN [Suspect]
     Indication: B-CELL LYMPHOMA
  4. CYCLOPHOSPHAMIDE [Suspect]
     Indication: B-CELL LYMPHOMA
  5. DEXAMETHASONE [Suspect]
     Indication: B-CELL LYMPHOMA
  6. CYTARABINE [Suspect]
     Indication: B-CELL LYMPHOMA
  7. CISPLATIN [Suspect]
     Indication: B-CELL LYMPHOMA

REACTIONS (6)
  - LUNG NEOPLASM MALIGNANT [None]
  - RICHTER'S SYNDROME [None]
  - HODGKIN'S DISEASE [None]
  - PANCYTOPENIA [None]
  - SARCOMA UTERUS [None]
  - NEUTROPENIA [None]
